FAERS Safety Report 11111788 (Version 1)
Quarter: 2015Q2

REPORT INFORMATION
  Report Type: Spontaneous
  Country: US (occurrence: None)
  Receive Date: 20150513
  Receipt Date: 20150513
  Transmission Date: 20150821
  Serious: No
  Sender: FDA-Public Use
  Company Number: None

PATIENT
  Age: 36 Year
  Sex: Male
  Weight: 60.5 kg

DRUGS (1)
  1. GADOBENATE [Suspect]
     Active Substance: GADOBENATE DIMEGLUMINE
     Indication: ANGIOGRAM
     Dates: start: 20150210, end: 20150210

REACTIONS (3)
  - Contrast media reaction [None]
  - Pruritus [None]
  - Urticaria [None]

NARRATIVE: CASE EVENT DATE: 20150210
